FAERS Safety Report 7600812-7 (Version None)
Quarter: 2011Q3

REPORT INFORMATION
  Report Type: 
  Country: None (occurrence: None)
  Receive Date: 20110708
  Receipt Date: 20110708
  Transmission Date: 20111222
  Serious: No
  Sender: FDA-Public Use
  Company Number: None

PATIENT
  Age: 58 Year
  Sex: Female
  Weight: 83.4619 kg

DRUGS (1)
  1. AMITRIPTYLINE HCL [Suspect]
     Indication: SLEEP DISORDER
     Dosage: 1 PILL, 10MG BEFORE BED PO
     Route: 048
     Dates: start: 20110702, end: 20110702

REACTIONS (3)
  - NAUSEA [None]
  - HEADACHE [None]
  - PRODUCT SUBSTITUTION ISSUE [None]
